FAERS Safety Report 7078407-6 (Version None)
Quarter: 2010Q4

REPORT INFORMATION
  Report Type: 
  Country: None (occurrence: None)
  Receive Date: 20101101
  Receipt Date: 20101101
  Transmission Date: 20110411
  Serious: Yes (Other)
  Sender: FDA-Public Use
  Company Number: None

PATIENT
  Age: 63 Year
  Sex: Female
  Weight: 72.5755 kg

DRUGS (7)
  1. LOTRONEX [Suspect]
     Indication: IRRITABLE BOWEL SYNDROME
     Dosage: 0.25MG TWICE DAILY PO
     Route: 048
     Dates: start: 20100921, end: 20101031
  2. ENTOCORT EC [Concomitant]
  3. ASACOL [Concomitant]
  4. IMODIUM [Concomitant]
  5. LOMOTIL [Concomitant]
  6. XIFAXAN [Concomitant]
  7. BENTYL [Concomitant]

REACTIONS (5)
  - ARTHRALGIA [None]
  - MUSCULOSKELETAL STIFFNESS [None]
  - MYALGIA [None]
  - PAIN [None]
  - POOR QUALITY SLEEP [None]
